FAERS Safety Report 8778273 (Version 2)
Quarter: 2013Q2

REPORT INFORMATION
  Report Type: Report from Study
  Country: BR (occurrence: BR)
  Receive Date: 20120912
  Receipt Date: 20130524
  Transmission Date: 20140414
  Serious: Yes (Other)
  Sender: FDA-Public Use
  Company Number: BR-ROCHE-1110746

PATIENT
  Sex: Female
  Weight: 93 kg

DRUGS (5)
  1. INTERFERON ALFA-2A [Suspect]
     Indication: HEPATITIS C
     Route: 042
     Dates: start: 200508, end: 2005
  2. RIBAVIRIN [Suspect]
     Indication: HEPATITIS C
     Route: 065
     Dates: start: 200508, end: 2005
  3. HYDROCHLOROTHIAZIDE [Concomitant]
     Route: 065
  4. PROPALOL [Concomitant]
     Dosage: REPORTED AS PROPANOLOL
     Route: 065
  5. PURAN T4 [Concomitant]
     Route: 065

REACTIONS (1)
  - Hepatitis C [Not Recovered/Not Resolved]
